FAERS Safety Report 20954135 (Version 1)
Quarter: 2022Q2

REPORT INFORMATION
  Report Type: Other
  Country: CN (occurrence: None)
  Receive Date: 20220614
  Receipt Date: 20220614
  Transmission Date: 20220721
  Serious: Yes (Other)
  Sender: FDA-Public Use
  Company Number: CN-ROCHE-3110860

PATIENT
  Age: 65 Year
  Sex: Female
  Weight: 50 kg

DRUGS (1)
  1. AVASTIN [Suspect]
     Active Substance: BEVACIZUMAB
     Indication: Intestinal adenocarcinoma
     Route: 041
     Dates: start: 20160817

REACTIONS (2)
  - Thyroidectomy [Unknown]
  - Nodule [Unknown]

NARRATIVE: CASE EVENT DATE: 20211015
